FAERS Safety Report 9286781 (Version 1)
Quarter: 2013Q2

REPORT INFORMATION
  Report Type: Spontaneous
  Country: UA (occurrence: None)
  Receive Date: 20130509
  Receipt Date: 20130509
  Transmission Date: 20140414
  Serious: Yes (Disabling)
  Sender: FDA-Public Use
  Company Number: UA-1197777

PATIENT
  Age: 76 Year
  Sex: Male

DRUGS (1)
  1. MAXIDEX [Suspect]
     Indication: POSTOPERATIVE CARE
     Dosage: 0.1 % 6X/DAY OD OPHTHALMIC
     Route: 047
     Dates: start: 20130411, end: 20130413

REACTIONS (4)
  - Vision blurred [None]
  - Eye oedema [None]
  - Ocular discomfort [None]
  - Ocular hyperaemia [None]
